FAERS Safety Report 4636749-5 (Version None)
Quarter: 2005Q2

REPORT INFORMATION
  Report Type: 
  Country: None (occurrence: None)
  Receive Date: 20050414
  Receipt Date: 20050401
  Transmission Date: 20051028
  Serious: Yes (Other)
  Sender: FDA-Public Use
  Company Number: 2005057114

PATIENT
  Age: 46 Year
  Sex: Male
  Weight: 74 kg

DRUGS (1)
  1. VIAGRA [Suspect]
     Indication: ERECTILE DYSFUNCTION
     Dosage: 100 MG, AS NECESSARY, ORAL
     Route: 048
     Dates: end: 20050309

REACTIONS (3)
  - RETINAL VEIN THROMBOSIS [None]
  - VISION BLURRED [None]
  - VISUAL ACUITY REDUCED [None]
